FAERS Safety Report 8802880 (Version 1)
Quarter: 2012Q4

REPORT INFORMATION
  Report Type: 
  Country: US (occurrence: US)
  Receive Date: 20120924
  Receipt Date: 20120924
  Transmission Date: 20130627
  Serious: Yes (Other)
  Sender: FDA-Public Use
  Company Number: US-JNJFOC-20120909053

PATIENT
  Age: 25 Year
  Sex: Female

DRUGS (2)
  1. PEPCID [Suspect]
     Route: 065
  2. PEPCID [Suspect]
     Indication: PRODUCT USED FOR UNKNOWN INDICATION
     Route: 065

REACTIONS (3)
  - Drug hypersensitivity [Unknown]
  - Respiratory distress [Unknown]
  - Heart rate increased [Unknown]
